FAERS Safety Report 5112742-3 (Version None)
Quarter: 2006Q3

REPORT INFORMATION
  Report Type: 
  Country: None (occurrence: None)
  Receive Date: 20060919
  Receipt Date: 20060907
  Transmission Date: 20061208
  Serious: Yes (Hospitalization, Other)
  Sender: FDA-Public Use
  Company Number: HQWYE851317APR06

PATIENT
  Age: 77 Year
  Sex: Male

DRUGS (2)
  1. CHLORAMBUCIL, CONTROL FOR TEMSIROLIMUS (CHLORAMBUCIL, CONTROL FOR TEMS [Suspect]
     Indication: MANTLE CELL LYMPHOMA
     Dosage: 6 MG 1X PER 1 DAY ORAL
     Route: 048
     Dates: start: 20060329, end: 20060412
  2. BENAZEPRIL HCL AND HYDROCHLOROTHIAZIDE [Concomitant]

REACTIONS (7)
  - BLOOD LACTATE DEHYDROGENASE INCREASED [None]
  - BLOOD SODIUM DECREASED [None]
  - DISEASE PROGRESSION [None]
  - FATIGUE [None]
  - HAEMATOCRIT DECREASED [None]
  - LYMPHOCYTE COUNT DECREASED [None]
  - PLEURAL EFFUSION [None]
